FAERS Safety Report 8870034 (Version 1)
Quarter: 2012Q4

REPORT INFORMATION
  Report Type: Spontaneous
  Country: US (occurrence: None)
  Receive Date: 20121025
  Receipt Date: 20121025
  Transmission Date: 20130627
  Serious: No
  Sender: FDA-Public Use
  Company Number: None

PATIENT
  Age: 39 Year
  Sex: Male
  Weight: 124.74 kg

DRUGS (1)
  1. BUPROPRION XL [Suspect]
     Indication: BIPOLAR DISORDER
     Dosage: 300mg  qd  po
     Route: 048
     Dates: start: 20121010, end: 20121022

REACTIONS (3)
  - Dysarthria [None]
  - Swelling face [None]
  - Oedema peripheral [None]
